FAERS Safety Report 13014759 (Version 1)
Quarter: 2016Q4

REPORT INFORMATION
  Report Type: Spontaneous
  Country: US (occurrence: US)
  Receive Date: 20161209
  Receipt Date: 20161209
  Transmission Date: 20170207
  Serious: Yes (Death, Other)
  Sender: FDA-Public Use
  Company Number: US-PRINSTON PHARMACEUTICAL INC.-2016PRN00341

PATIENT
  Age: 68 Year
  Sex: Female

DRUGS (1)
  1. LISINOPRIL. [Suspect]
     Active Substance: LISINOPRIL

REACTIONS (6)
  - Acute hepatic failure [Fatal]
  - Ileus [None]
  - Septic shock [None]
  - Intestinal perforation [None]
  - Encephalopathy [None]
  - Drug-induced liver injury [Fatal]
